FAERS Safety Report 7854881-X (Version None)
Quarter: 2011Q4

REPORT INFORMATION
  Report Type: 
  Country: None (occurrence: None)
  Receive Date: 20111026
  Receipt Date: 20111017
  Transmission Date: 20120403
  Serious: Yes (Other)
  Sender: FDA-Public Use
  Company Number: US-ASTRAZENECA-2011SE62611

PATIENT
  Age: 58 Year
  Sex: Female
  Weight: 88.9 kg

DRUGS (6)
  1. SEROQUEL XR [Suspect]
     Indication: BIPOLAR DISORDER
     Route: 048
     Dates: start: 20110801
  2. LOVASTATIN [Concomitant]
     Route: 048
  3. SYNTHROID [Concomitant]
     Indication: THYROID DISORDER
     Route: 048
  4. ZETIA [Concomitant]
     Route: 048
  5. PROZAC [Concomitant]
     Indication: BIPOLAR DISORDER
     Route: 048
  6. CENTENAL PATCHES [Concomitant]
     Indication: INTERVERTEBRAL DISC PROTRUSION
     Dosage: 12 MG - 15 MG EVERY 72 HOURS
     Route: 061

REACTIONS (3)
  - PAIN IN EXTREMITY [None]
  - CONFUSIONAL STATE [None]
  - ROAD TRAFFIC ACCIDENT [None]
